FAERS Safety Report 20870605 (Version 1)
Quarter: 2022Q2

REPORT INFORMATION
  Report Type: Spontaneous
  Country: US (occurrence: US)
  Receive Date: 20220525
  Receipt Date: 20220525
  Transmission Date: 20220720
  Serious: Yes (Hospitalization)
  Sender: FDA-Public Use
  Company Number: US-AUROBINDO-AUR-APL-2022-018466

PATIENT
  Sex: Male

DRUGS (1)
  1. FOLOTYN [Suspect]
     Active Substance: PRALATREXATE
     Indication: T-cell lymphoma
     Dosage: UNK
     Route: 065
     Dates: start: 20220510

REACTIONS (4)
  - Skin exfoliation [Unknown]
  - Skin reaction [Unknown]
  - Skin maceration [Unknown]
  - Skin erosion [Unknown]

NARRATIVE: CASE EVENT DATE: 20220513
